FAERS Safety Report 4503341-2 (Version None)
Quarter: 2004Q4

REPORT INFORMATION
  Report Type: 
  Country: None (occurrence: None)
  Receive Date: 20041112
  Receipt Date: 20041104
  Transmission Date: 20050328
  Serious: Yes (Hospitalization, Disabling)
  Sender: FDA-Public Use
  Company Number: 210203

PATIENT
  Age: 43 Year
  Sex: Male

DRUGS (1)
  1. XOLAIR [Suspect]
     Indication: ASTHMA
     Dosage: 375 MG, Q2W, SUBCUTANEOUS
     Route: 058
     Dates: start: 20031230, end: 20040824

REACTIONS (4)
  - EOSINOPHILIA [None]
  - IMPAIRED WORK ABILITY [None]
  - MONONEUROPATHY MULTIPLEX [None]
  - WHEELCHAIR USER [None]
